FAERS Safety Report 7659241-2 (Version None)
Quarter: 2011Q3

REPORT INFORMATION
  Report Type: 
  Country: None (occurrence: None)
  Receive Date: 20110805
  Receipt Date: 20110725
  Transmission Date: 20111222
  Serious: Yes (Death, Congenital Anomaly)
  Sender: FDA-Public Use
  Company Number: FR-UCBSA-017512

PATIENT

DRUGS (2)
  1. FOLIC ACID [Concomitant]
  2. KEPPRA [Suspect]
     Indication: EPILEPSY
     Dosage: 1000MG DAILY
     Route: 064
     Dates: start: 20100401, end: 20100719

REACTIONS (2)
  - FOETAL MALFORMATION [None]
  - MATERNAL EXPOSURE DURING PREGNANCY [None]
